FAERS Safety Report 26019583 (Version 3)
Quarter: 2025Q4

REPORT INFORMATION
  Report Type: Spontaneous
  Country: EU (occurrence: EU)
  Receive Date: 20251110
  Receipt Date: 20251119
  Transmission Date: 20260117
  Serious: Yes (Other)
  Sender: MYLAN
  Company Number: EU-VA000000599-2025002390

PATIENT
  Age: 74 Year
  Sex: Female

DRUGS (9)
  1. METOPROLOL [Interacting]
     Active Substance: METOPROLOL
     Indication: Cardiac failure
     Dosage: 25 MILLIGRAM, BID (METOPROLOL (CONTROLLED RELEASE) 2X25 MILLIGRAM) (2X PER DAY)
  2. ACETAMINOPHEN [Interacting]
     Active Substance: ACETAMINOPHEN
     Indication: Back pain
     Dosage: 1 GRAM, Q8H (3 X 1GRAM) (1 G, 3X PER DAY)
  3. ACETAMINOPHEN [Interacting]
     Active Substance: ACETAMINOPHEN
     Indication: Pain
  4. MELOXICAM [Interacting]
     Active Substance: MELOXICAM
     Indication: Back pain
     Dosage: 15 MILLIGRAM, QD (IN COMBINATION WITH PARACETAMOL 3X1 GRAM)
  5. RAMIPRIL [Interacting]
     Active Substance: RAMIPRIL
     Indication: Cardiac failure
     Dosage: 5 MILLIGRAM
  6. RAMIPRIL [Interacting]
     Active Substance: RAMIPRIL
     Indication: Renin-angiotensin system inhibition
  7. FUROSEMIDE [Interacting]
     Active Substance: FUROSEMIDE
     Indication: Cardiac failure
     Dosage: 40 MILLIGRAM, QD (DAILY)
  8. FUROSEMIDE [Interacting]
     Active Substance: FUROSEMIDE
     Indication: Diuretic therapy
  9. SPIRONOLACTONE [Interacting]
     Active Substance: SPIRONOLACTONE
     Indication: Cardiac failure
     Dosage: 50 MILLIGRAM, QD (DAILY)

REACTIONS (4)
  - Acute kidney injury [Unknown]
  - Nephropathy toxic [Unknown]
  - Drug interaction [Unknown]
  - Labelled drug-drug interaction medication error [Unknown]
